FAERS Safety Report 6132017-3 (Version None)
Quarter: 2009Q1

REPORT INFORMATION
  Report Type: 
  Country: None (occurrence: None)
  Receive Date: 20090325
  Receipt Date: 20090325
  Transmission Date: 20090719
  Serious: Yes (Hospitalization)
  Sender: FDA-Public Use
  Company Number: PHHO2003DK02671

PATIENT
  Sex: Female
  Weight: 67 kg

DRUGS (4)
  1. TAMOXIFEN CITRATE [Suspect]
     Indication: BREAST CANCER
     Dosage: 20 MG, QD
     Route: 048
     Dates: start: 19980911
  2. CARBAMAZEPIN [Suspect]
  3. CITALOPRAM HYDROBROMIDE [Suspect]
     Indication: MENTAL DISORDER
  4. PHENOBARBITAL TAB [Suspect]
     Indication: EPILEPSY

REACTIONS (3)
  - EPILEPSY [None]
  - OVERDOSE [None]
  - VERTIGO [None]
